FAERS Safety Report 9664540 (Version 1)
Quarter: 2013Q4

REPORT INFORMATION
  Report Type: Report from Study
  Country: US (occurrence: US)
  Receive Date: 20131101
  Receipt Date: 20131101
  Transmission Date: 20140711
  Serious: No
  Sender: FDA-Public Use
  Company Number: PHEH2013US022618

PATIENT
  Sex: Male

DRUGS (6)
  1. TASIGNA [Suspect]
     Indication: CHRONIC MYELOID LEUKAEMIA
     Dosage: 300 MG, BID
     Route: 048
  2. TESTOSTERONE [Concomitant]
  3. HYDRALAZINE [Concomitant]
  4. ASPIRIN [Concomitant]
  5. ULORIC [Concomitant]
  6. METOPROLOL [Concomitant]

REACTIONS (1)
  - Barrett^s oesophagus [Not Recovered/Not Resolved]
